FAERS Safety Report 18735722 (Version 1)
Quarter: 2021Q1

REPORT INFORMATION
  Report Type: Spontaneous
  Country: US (occurrence: US)
  Receive Date: 20210113
  Receipt Date: 20210113
  Transmission Date: 20210419
  Serious: No
  Sender: FDA-Public Use
  Company Number: None

PATIENT
  Age: 68 Year
  Sex: Female

DRUGS (11)
  1. LYRICA [Concomitant]
     Active Substance: PREGABALIN
  2. LEVO?T [Concomitant]
     Active Substance: LEVOTHYROXINE SODIUM
  3. LANTUS SOLOSTAR [Concomitant]
     Active Substance: INSULIN GLARGINE
  4. SIMVASTATIN. [Concomitant]
     Active Substance: SIMVASTATIN
  5. ELIQUIS [Concomitant]
     Active Substance: APIXABAN
  6. METOPROLOL SUCCINATE ER [Concomitant]
     Active Substance: METOPROLOL SUCCINATE
  7. NOVOLOG [Concomitant]
     Active Substance: INSULIN ASPART
  8. PLAVIX [Concomitant]
     Active Substance: CLOPIDOGREL BISULFATE
  9. RANOLAZINE ER [Concomitant]
     Active Substance: RANOLAZINE
  10. SERTRALINE HCL [Concomitant]
     Active Substance: SERTRALINE HYDROCHLORIDE
  11. CAPECITABINE 500MG [Suspect]
     Active Substance: CAPECITABINE
     Indication: BREAST CANCER FEMALE
     Route: 048

REACTIONS (1)
  - Disease progression [None]

NARRATIVE: CASE EVENT DATE: 20210113
